FAERS Safety Report 25481892 (Version 1)
Quarter: 2025Q2

REPORT INFORMATION
  Report Type: Spontaneous
  Country: US (occurrence: US)
  Receive Date: 20250626
  Receipt Date: 20250626
  Transmission Date: 20250716
  Serious: No
  Sender: MERCK SHARP & DOHME LLC
  Company Number: US-009507513-2292610

PATIENT
  Age: 69 Year
  Sex: Male

DRUGS (4)
  1. BELSOMRA [Suspect]
     Active Substance: SUVOREXANT
     Indication: Insomnia
     Dosage: 10MG ONCE DAILY
     Route: 048
     Dates: start: 20250603
  2. TYLENOL [Concomitant]
     Active Substance: ACETAMINOPHEN
  3. XANAX [Concomitant]
     Active Substance: ALPRAZOLAM
  4. AMBIEN [Concomitant]
     Active Substance: ZOLPIDEM TARTRATE
     Dates: start: 2024, end: 20250531

REACTIONS (1)
  - Drug ineffective [Not Recovered/Not Resolved]

NARRATIVE: CASE EVENT DATE: 20240603
